FAERS Safety Report 5319991-X (Version None)
Quarter: 2007Q1

REPORT INFORMATION
  Report Type: 
  Country: None (occurrence: None)
  Receive Date: 20070209
  Receipt Date: 20070103
  Transmission Date: 20070707
  Serious: Yes (Other)
  Sender: FDA-Public Use
  Company Number: 200710078US

PATIENT
  Age: 75 Year
  Sex: Male
  Weight: 70.76 kg

DRUGS (8)
  1. INSULIN GLULISINE (APIDRA) [Suspect]
     Indication: DIABETES MELLITUS
     Dosage: AC
     Dates: start: 20060101
  2. LANTUS [Suspect]
     Indication: DIABETES MELLITUS
     Dosage: 38 U HS
  3. OPTICLIK [Suspect]
     Indication: DIABETES MELLITUS
     Dates: start: 20060101
  4. METOPROLOL SUCCINATE (TOPROL) [Concomitant]
  5. COZAAR [Concomitant]
  6. PROSCAR [Concomitant]
  7. TAMSULOSIN HCL [Concomitant]
  8. ACETYLSALICYLIC ACID (ASPIRIN0 [Concomitant]

REACTIONS (2)
  - HYPOGLYCAEMIA [None]
  - MEDICATION ERROR [None]
